FAERS Safety Report 10445013 (Version 2)
Quarter: 2014Q3

REPORT INFORMATION
  Report Type: Spontaneous
  Country: FR (occurrence: FR)
  Receive Date: 20140910
  Receipt Date: 20140910
  Transmission Date: 20150326
  Serious: Yes (Other)
  Sender: FDA-Public Use
  Company Number: FR-BRISTOL-MYERS SQUIBB COMPANY-21050257

PATIENT
  Age: 51 Year
  Sex: Female
  Weight: 55 kg

DRUGS (7)
  1. NOVATREX NOS [Concomitant]
     Active Substance: AZITHROMYCIN OR METHOTREXATE SODIUM
     Indication: RHEUMATOID ARTHRITIS
  2. SPECIAFOLDINE [Concomitant]
     Active Substance: FOLIC ACID
  3. VOLTARENE [Suspect]
     Active Substance: DICLOFENAC SODIUM
  4. ZELITREX [Concomitant]
     Active Substance: VALACYCLOVIR HYDROCHLORIDE
     Indication: HERPES VIRUS INFECTION
  5. CELEBREX [Concomitant]
     Active Substance: CELECOXIB
     Indication: RHEUMATOID ARTHRITIS
  6. DAFALGAN [Concomitant]
     Active Substance: ACETAMINOPHEN
  7. ORENCIA [Suspect]
     Active Substance: ABATACEPT
     Indication: RHEUMATOID ARTHRITIS
     Dosage: SHE FIRST RECEIVED ORENCIA IV 500 MG, AND THEN ORENCIA SC 125/WEEK.?INTER:06JUN14
     Route: 058
     Dates: start: 20140407, end: 20140715

REACTIONS (1)
  - Stomatitis [Recovered/Resolved]

NARRATIVE: CASE EVENT DATE: 20140530
